FAERS Safety Report 9859603 (Version 2)
Quarter: 2014Q1

REPORT INFORMATION
  Report Type: Spontaneous
  Country: VE (occurrence: VE)
  Receive Date: 20140131
  Receipt Date: 20140314
  Transmission Date: 20141002
  Serious: Yes (Hospitalization, Other)
  Sender: FDA-Public Use
  Company Number: PHHY2014VE012121

PATIENT
  Age: 21 Year
  Sex: Male

DRUGS (2)
  1. TEGRETOL-XR [Suspect]
     Indication: EPILEPSY
     Dosage: 1.5 DF (A PILL AND A HALF IN THE MORNING, AND A PILL AND A HALF IN THE AFTERNOON), BID
     Route: 048
     Dates: start: 1992
  2. EPAMIN [Concomitant]
     Indication: EPILEPSY
     Dosage: UNK UKN, UNK
     Route: 048

REACTIONS (8)
  - Convulsion [Recovered/Resolved]
  - Joint dislocation [Recovered/Resolved]
  - Drug withdrawal syndrome [Recovered/Resolved]
  - Thrombosis [Recovering/Resolving]
  - Head injury [Unknown]
  - Limb injury [Recovered/Resolved]
  - Pain in extremity [Recovering/Resolving]
  - Muscular weakness [Recovering/Resolving]
